FAERS Safety Report 23500230 (Version 3)
Quarter: 2024Q3

REPORT INFORMATION
  Report Type: Spontaneous
  Country: US (occurrence: US)
  Receive Date: 20240208
  Receipt Date: 20240704
  Transmission Date: 20241016
  Serious: No
  Sender: BRISTOL MYERS SQUIBB
  Company Number: US-BRISTOL-MYERS SQUIBB COMPANY-2024-020632

PATIENT
  Age: 86 Year
  Sex: Male
  Weight: 47.17 kg

DRUGS (3)
  1. REVLIMID [Suspect]
     Active Substance: LENALIDOMIDE
     Indication: Plasma cell myeloma
     Route: 048
  2. REVLIMID [Suspect]
     Active Substance: LENALIDOMIDE
  3. REVLIMID [Suspect]
     Active Substance: LENALIDOMIDE
     Route: 048
     Dates: start: 2023

REACTIONS (6)
  - Diarrhoea [Unknown]
  - Taste disorder [Unknown]
  - Oropharyngeal pain [Recovering/Resolving]
  - Tonsillolith [Recovering/Resolving]
  - Tonsillitis [Recovering/Resolving]
  - Back pain [Not Recovered/Not Resolved]
